FAERS Safety Report 25238784 (Version 1)
Quarter: 2025Q2

REPORT INFORMATION
  Report Type: Spontaneous
  Country: US (occurrence: None)
  Receive Date: 20250424
  Receipt Date: 20250424
  Transmission Date: 20250717
  Serious: Yes (Other)
  Sender: FDA-CTU
  Company Number: None

PATIENT
  Age: 64 Year
  Sex: Male

DRUGS (1)
  1. NICOTINAMIDE RIBOSIDE CHLORIDE [Suspect]
     Active Substance: NICOTINAMIDE RIBOSIDE CHLORIDE
     Route: 030

REACTIONS (3)
  - Injection site pain [None]
  - Paraesthesia oral [None]
  - Pain in jaw [None]
